FAERS Safety Report 7949030-3 (Version None)
Quarter: 2011Q4

REPORT INFORMATION
  Report Type: 
  Country: None (occurrence: None)
  Receive Date: 20111130
  Receipt Date: 20111104
  Transmission Date: 20120403
  Serious: No
  Sender: FDA-Public Use
  Company Number: US-BRISTOL-MYERS SQUIBB COMPANY-16215816

PATIENT
  Age: 66 Year
  Sex: Male

DRUGS (4)
  1. KOMBIGLYZE XR [Suspect]
     Indication: DIABETES MELLITUS
     Dosage: 1DF:5/500 QD
     Dates: start: 20110401
  2. ONGLYZA [Suspect]
     Indication: DIABETES MELLITUS
  3. GLUCOPHAGE [Suspect]
     Indication: DIABETES MELLITUS
     Dosage: 1DF:500 UNIT NOS
     Dates: start: 20100101
  4. LANTUS [Concomitant]
     Dates: start: 20111001

REACTIONS (1)
  - BLOOD GLUCOSE FLUCTUATION [None]
